FAERS Safety Report 11119345 (Version 21)
Quarter: 2020Q2

REPORT INFORMATION
  Report Type: Spontaneous
  Country: CA (occurrence: CA)
  Receive Date: 20150518
  Receipt Date: 20200611
  Transmission Date: 20200713
  Serious: Yes (Other)
  Sender: FDA-Public Use
  Company Number: CA-PFIZER INC-2015099065

PATIENT
  Age: 74 Year
  Sex: Female

DRUGS (4)
  1. XELJANZ [Suspect]
     Active Substance: TOFACITINIB CITRATE
     Dosage: 5 MG 2X/DAY
     Route: 048
     Dates: start: 20150601
  2. PREDNISONE. [Concomitant]
     Active Substance: PREDNISONE
     Dosage: UNK
  3. ALEVE [Concomitant]
     Active Substance: NAPROXEN SODIUM
     Indication: RHEUMATOID ARTHRITIS
     Dosage: UNK
  4. XELJANZ [Suspect]
     Active Substance: TOFACITINIB CITRATE
     Indication: RHEUMATOID ARTHRITIS
     Dosage: 5 MG, 2X/DAY
     Route: 048
     Dates: start: 20150211, end: 20150506

REACTIONS (31)
  - Condition aggravated [Not Recovered/Not Resolved]
  - Fatigue [Recovering/Resolving]
  - Upper respiratory tract infection [Unknown]
  - Sinus congestion [Recovering/Resolving]
  - Deafness [Recovering/Resolving]
  - Diarrhoea [Recovering/Resolving]
  - Urine odour abnormal [Not Recovered/Not Resolved]
  - Rheumatoid arthritis [Not Recovered/Not Resolved]
  - Hypertension [Recovering/Resolving]
  - Vomiting [Recovering/Resolving]
  - Nasopharyngitis [Not Recovered/Not Resolved]
  - Dental caries [Not Recovered/Not Resolved]
  - Toothache [Not Recovered/Not Resolved]
  - Tendon rupture [Unknown]
  - Cerebrovascular accident [Unknown]
  - Hypersensitivity [Recovering/Resolving]
  - Rhinorrhoea [Recovering/Resolving]
  - Abnormal faeces [Not Recovered/Not Resolved]
  - Eye infection [Not Recovered/Not Resolved]
  - Joint injury [Not Recovered/Not Resolved]
  - Ligament rupture [Recovering/Resolving]
  - Nausea [Recovering/Resolving]
  - Conjunctivitis [Recovered/Resolved]
  - Laryngitis [Not Recovered/Not Resolved]
  - Depressed mood [Unknown]
  - Peripheral swelling [Not Recovered/Not Resolved]
  - Muscle spasms [Not Recovered/Not Resolved]
  - Memory impairment [Unknown]
  - Sinus headache [Recovering/Resolving]
  - Fungal infection [Recovered/Resolved]
  - Tendonitis [Recovering/Resolving]

NARRATIVE: CASE EVENT DATE: 20150317
